FAERS Safety Report 12466870 (Version 1)
Quarter: 2016Q2

REPORT INFORMATION
  Report Type: Spontaneous
  Country: US (occurrence: None)
  Receive Date: 20160614
  Receipt Date: 20160614
  Transmission Date: 20160815
  Serious: Yes (Disabling)
  Sender: FDA-Public Use
  Company Number: None

PATIENT
  Age: 37 Year
  Sex: Female
  Weight: 99.79 kg

DRUGS (15)
  1. SYNTHROID [Concomitant]
     Active Substance: LEVOTHYROXINE SODIUM
  2. LEXAPRO [Concomitant]
     Active Substance: ESCITALOPRAM OXALATE
  3. ZYRTEC [Concomitant]
     Active Substance: CETIRIZINE HYDROCHLORIDE
  4. BERBERINE [Concomitant]
     Active Substance: BERBERINE
  5. VITAMIN B12 [Concomitant]
     Active Substance: CYANOCOBALAMIN
  6. TURMERIC [Concomitant]
     Active Substance: TURMERIC
  7. LIOTHYRONININE [Concomitant]
  8. PRAVASTATIN [Concomitant]
     Active Substance: PRAVASTATIN\PRAVASTATIN SODIUM
  9. BIOTIN [Concomitant]
     Active Substance: BIOTIN
  10. THIAMINE. [Concomitant]
     Active Substance: THIAMINE
  11. OMEPRAZOLE. [Suspect]
     Active Substance: OMEPRAZOLE
     Indication: GASTROOESOPHAGEAL REFLUX DISEASE
     Route: 048
     Dates: start: 20130522, end: 20150109
  12. CALCITRIOL. [Concomitant]
     Active Substance: CALCITRIOL
  13. QSYMIA [Concomitant]
     Active Substance: PHENTERMINE HYDROCHLORIDE\TOPIRAMATE
  14. CALCIUM [Concomitant]
     Active Substance: CALCIUM
  15. SELENIUM [Concomitant]
     Active Substance: SELENIUM

REACTIONS (1)
  - Vitamin B12 deficiency [None]
